FAERS Safety Report 5236897-5 (Version None)
Quarter: 2007Q1

REPORT INFORMATION
  Report Type: 
  Country: None (occurrence: None)
  Receive Date: 20061208
  Receipt Date: 20050222
  Transmission Date: 20070707
  Serious: Yes (Other)
  Sender: FDA-Public Use
  Company Number: 2005UW03046

PATIENT

DRUGS (3)
  1. CRESTOR [Suspect]
     Dosage: 10 MG PO
     Route: 048
  2. ACTONEL [Concomitant]
  3. PREVACID [Concomitant]

REACTIONS (2)
  - MUSCLE DISORDER [None]
  - MUSCLE SPASMS [None]
